FAERS Safety Report 5776271-6 (Version None)
Quarter: 2008Q2

REPORT INFORMATION
  Report Type: 
  Country: None (occurrence: None)
  Receive Date: 20080616
  Receipt Date: 20080527
  Transmission Date: 20081010
  Serious: Yes (Other)
  Sender: FDA-Public Use
  Company Number: 2008015210

PATIENT
  Sex: 0

DRUGS (1)
  1. VISINE (OXYMETAZOLINE) [Suspect]
     Dosage: ORAL
     Route: 048

REACTIONS (5)
  - ASTHENIA [None]
  - DIARRHOEA [None]
  - DRUG TOXICITY [None]
  - DYSSTASIA [None]
  - INCORRECT ROUTE OF DRUG ADMINISTRATION [None]
